FAERS Safety Report 25256580 (Version 1)
Quarter: 2025Q2

REPORT INFORMATION
  Report Type: Spontaneous
  Country: US (occurrence: US)
  Receive Date: 20250430
  Receipt Date: 20250430
  Transmission Date: 20250717
  Serious: No
  Sender: EISAI
  Company Number: US-Eisai-EC-2025-187431

PATIENT
  Age: 76 Year
  Sex: Female

DRUGS (1)
  1. LEQEMBI [Suspect]
     Active Substance: LECANEMAB-IRMB
     Indication: Dementia Alzheimer^s type

REACTIONS (1)
  - Amyloid related imaging abnormalities [Unknown]
